FAERS Safety Report 9412097 (Version 1)
Quarter: 2013Q3

REPORT INFORMATION
  Report Type: Spontaneous
  Country: US (occurrence: None)
  Receive Date: 20130719
  Receipt Date: 20130719
  Transmission Date: 20140515
  Serious: Yes (Other)
  Sender: FDA-Public Use
  Company Number: None

PATIENT
  Age: 20 Year
  Sex: Female
  Weight: 52.16 kg

DRUGS (3)
  1. SPRINTEC [Suspect]
     Indication: CONTRACEPTION
     Dosage: 0.250 MG/0.035MG 1 TABLET 1X PER DAY AT SOME TIME DAILY MOUTH
     Route: 048
     Dates: start: 201208, end: 20130626
  2. WARFARIN [Concomitant]
  3. BLOOD THINNERS [Concomitant]

REACTIONS (3)
  - Haemoptysis [None]
  - Thrombosis [None]
  - Pulmonary haemorrhage [None]
